FAERS Safety Report 7961040-9 (Version None)
Quarter: 2011Q4

REPORT INFORMATION
  Report Type: 
  Country: None (occurrence: None)
  Receive Date: 20111207
  Receipt Date: 20111128
  Transmission Date: 20120403
  Serious: Yes (Hospitalization, Other)
  Sender: FDA-Public Use
  Company Number: US-ELI_LILLY_AND_COMPANY-US201111008862

PATIENT
  Sex: Female

DRUGS (5)
  1. CARBATOL [Concomitant]
     Dosage: 1000 MG, QD
  2. FELBATOL [Concomitant]
     Dosage: 3600 MG, QD
  3. FOLIC ACID [Concomitant]
     Dosage: 800 UG, QD
  4. FORTEO [Suspect]
     Indication: OSTEOPOROSIS
     Dosage: 20 UG, QD
     Dates: start: 20111106
  5. LEVOTHYROXINE SODIUM [Concomitant]
     Dosage: 100 UG, QD

REACTIONS (4)
  - FRACTURE [None]
  - FALL [None]
  - FEMUR FRACTURE [None]
  - CONVULSION [None]
